FAERS Safety Report 19755146 (Version 2)
Quarter: 2021Q3

REPORT INFORMATION
  Report Type: Report from Study
  Country: US (occurrence: US)
  Receive Date: 20210827
  Receipt Date: 20210921
  Transmission Date: 20211014
  Serious: Yes (Hospitalization, Other)
  Sender: FDA-Public Use
  Company Number: US-BIOVITRUM-2021US6410

PATIENT
  Age: 9 Year
  Sex: Female

DRUGS (3)
  1. KINERET [Suspect]
     Active Substance: ANAKINRA
     Indication: MUCOPOLYSACCHARIDOSIS
     Route: 058
     Dates: start: 202004
  2. KINERET [Suspect]
     Active Substance: ANAKINRA
     Route: 058
     Dates: start: 20210602
  3. KEPPRA [Suspect]
     Active Substance: LEVETIRACETAM
     Indication: SEIZURE

REACTIONS (15)
  - Constipation [Unknown]
  - Weight decreased [Recovering/Resolving]
  - Insomnia [Unknown]
  - Wound [Unknown]
  - Sinus disorder [Unknown]
  - Product dose omission issue [Unknown]
  - COVID-19 [Unknown]
  - Joint stiffness [Unknown]
  - Fatigue [Unknown]
  - Seizure [Recovered/Resolved]
  - Agitation [Unknown]
  - Hypertension [Unknown]
  - Kidney enlargement [Unknown]
  - Off label use [Unknown]
  - Increased tendency to bruise [Unknown]

NARRATIVE: CASE EVENT DATE: 202004
